FAERS Safety Report 9757837 (Version 2)
Quarter: 2014Q1

REPORT INFORMATION
  Report Type: Spontaneous
  Country: IE (occurrence: IE)
  Receive Date: 20131216
  Receipt Date: 20140117
  Transmission Date: 20141002
  Serious: Yes (Hospitalization)
  Sender: FDA-Public Use
  Company Number: IE-AMGEN-IRLSP2013087293

PATIENT
  Age: 73 Year
  Sex: Male
  Weight: 82 kg

DRUGS (4)
  1. NEUPOGEN [Suspect]
     Indication: NEUTROPENIA
     Dosage: 30 MU, ONCE AND THEN OFF
     Route: 058
     Dates: start: 20131204, end: 20131204
  2. NEULASTA [Suspect]
     Indication: NEUTROPENIA
     Dosage: 6 MG, MONTHLY
     Route: 058
     Dates: start: 20131016
  3. RITUXIMAB [Suspect]
     Indication: CHRONIC LYMPHOCYTIC LEUKAEMIA
     Dosage: 375 MG/M2, UNK
     Route: 042
     Dates: start: 201307, end: 201312
  4. BENDAMUSTINE [Suspect]
     Indication: CHRONIC LYMPHOCYTIC LEUKAEMIA
     Dosage: 90 MG/M2, DI+2
     Route: 042
     Dates: start: 201307, end: 201310

REACTIONS (3)
  - Neutropenic sepsis [Recovered/Resolved]
  - Malaise [Unknown]
  - Hypotension [Unknown]
